FAERS Safety Report 14761633 (Version 1)
Quarter: 2018Q2

REPORT INFORMATION
  Report Type: Spontaneous
  Country: RU (occurrence: RU)
  Receive Date: 20180416
  Receipt Date: 20180416
  Transmission Date: 20180711
  Serious: Yes (Other)
  Sender: FDA-Public Use
  Company Number: RU-ROCHE-2106216

PATIENT
  Age: 67 Year
  Sex: Male

DRUGS (2)
  1. GAZYVA [Suspect]
     Active Substance: OBINUTUZUMAB
     Indication: CHRONIC LYMPHOCYTIC LEUKAEMIA
     Route: 065
     Dates: start: 20151007, end: 201604
  2. IBRUTINIB [Suspect]
     Active Substance: IBRUTINIB
     Indication: CHRONIC LYMPHOCYTIC LEUKAEMIA
     Route: 065
     Dates: start: 20151007, end: 201604

REACTIONS (6)
  - Haemorrhagic diathesis [Recovered/Resolved]
  - Hypotension [Unknown]
  - Intentional product use issue [Unknown]
  - Chills [Unknown]
  - Hyperthermia [Unknown]
  - Off label use [Unknown]

NARRATIVE: CASE EVENT DATE: 20151007
